FAERS Safety Report 5951636-8 (Version None)
Quarter: 2008Q4

REPORT INFORMATION
  Report Type: 
  Country: None (occurrence: None)
  Receive Date: 20081113
  Receipt Date: 20081029
  Transmission Date: 20090506
  Serious: Yes (Disabling, Other)
  Sender: FDA-Public Use
  Company Number: GB-CELGENEUS-167-20484-08110199

PATIENT
  Age: 32 Year
  Sex: Female

DRUGS (1)
  1. TINZAPARIN [Suspect]
     Indication: THROMBOSIS PROPHYLAXIS
     Route: 058

REACTIONS (3)
  - DRUG EXPOSURE DURING PREGNANCY [None]
  - OSTEOPENIA [None]
  - SPINAL COMPRESSION FRACTURE [None]
